FAERS Safety Report 6585572-3 (Version None)
Quarter: 2010Q1

REPORT INFORMATION
  Report Type: 
  Country: None (occurrence: None)
  Receive Date: 20100217
  Receipt Date: 20100209
  Transmission Date: 20100710
  Serious: Yes (Other)
  Sender: FDA-Public Use
  Company Number: GXKR2010FR01655

PATIENT
  Age: 36 Year
  Sex: Male

DRUGS (3)
  1. CISPLATIN [Suspect]
     Indication: TESTICULAR SEMINOMA (PURE) STAGE I
     Dosage: 20 MG/M2/DAY (4 CYCLES)
     Route: 065
  2. PREDNISOLONE [Suspect]
     Dosage: MORE THAN 420 MG
     Route: 065
  3. ETOPOSIDE [Concomitant]
     Indication: TESTICULAR SEMINOMA (PURE) STAGE I
     Dosage: 100 MG/M2/DAY (4 CYCLES)
     Route: 065

REACTIONS (7)
  - ARTERIAL THROMBOSIS [None]
  - FASCIOTOMY [None]
  - PAIN IN EXTREMITY [None]
  - PALLOR [None]
  - SENSORY LOSS [None]
  - SWELLING [None]
  - THROMBOEMBOLECTOMY [None]
